FAERS Safety Report 5514712-X (Version None)
Quarter: 2007Q4

REPORT INFORMATION
  Report Type: 
  Country: None (occurrence: None)
  Receive Date: 20071113
  Receipt Date: 20071105
  Transmission Date: 20080405
  Serious: Yes (Other)
  Sender: FDA-Public Use
  Company Number: GB-ELI_LILLY_AND_COMPANY-GB200711001093

PATIENT
  Sex: Female
  Weight: 49 kg

DRUGS (1)
  1. PROZAC [Suspect]
     Indication: DEPRESSION
     Dosage: 40 MG, UNK
     Route: 048
     Dates: start: 20070206, end: 20070902

REACTIONS (2)
  - HOMICIDAL IDEATION [None]
  - SELF INJURIOUS BEHAVIOUR [None]
